FAERS Safety Report 8544581-5 (Version None)
Quarter: 2012Q2

REPORT INFORMATION
  Report Type: 
  Country: None (occurrence: None)
  Receive Date: 20120416
  Receipt Date: 20101021
  Transmission Date: 20120825
  Serious: Yes (Other)
  Sender: FDA-Public Use
  Company Number: PHHY2010US71138

PATIENT

DRUGS (2)
  1. PROCARDIA [Concomitant]
  2. DIOVAN [Suspect]
     Dosage: 320 MG, BID

REACTIONS (1)
  - HYPERTENSION [None]
